FAERS Safety Report 8873502 (Version 4)
Quarter: 2013Q2

REPORT INFORMATION
  Report Type: Spontaneous
  Country: US (occurrence: US)
  Receive Date: 20121029
  Receipt Date: 20130417
  Transmission Date: 20140414
  Serious: Yes (Hospitalization)
  Sender: FDA-Public Use
  Company Number: US-B.I. PHARMACEUTICALS,INC./RIDGEFIELD-2012-BP-26331BP

PATIENT
  Age: 54 Year
  Sex: Female
  Weight: 58.97 kg

DRUGS (12)
  1. PRADAXA [Suspect]
     Indication: ANTICOAGULANT THERAPY
     Dates: start: 20110711, end: 20110725
  2. BACLOFEN [Concomitant]
     Dates: start: 2006
  3. AMBIEN [Concomitant]
     Dates: start: 1994
  4. OXYCONTIN [Concomitant]
     Dates: start: 2006
  5. GABAPENTIN [Concomitant]
     Dates: start: 2006
  6. PERIDIUM [Concomitant]
     Dates: start: 2006
  7. SERTRALINE [Concomitant]
     Dates: start: 2006
  8. MAXZIDE [Concomitant]
     Dates: start: 2006
  9. ALPRAZOLAM [Concomitant]
     Dates: start: 2006
  10. SOMA [Concomitant]
     Dates: start: 2006
  11. FLONASE [Concomitant]
     Dates: start: 1994
  12. DEMEROL [Concomitant]
     Dates: start: 2006

REACTIONS (2)
  - Gastrointestinal haemorrhage [Unknown]
  - Haemorrhagic anaemia [Unknown]
